FAERS Safety Report 10645767 (Version 1)
Quarter: 2014Q4

REPORT INFORMATION
  Report Type: Spontaneous
  Country: US (occurrence: US)
  Receive Date: 20141211
  Receipt Date: 20141211
  Transmission Date: 20150529
  Serious: Yes (Other)
  Sender: FDA-Public Use
  Company Number: US-PFIZER INC-2014334142

PATIENT
  Age: 85 Year
  Sex: Female
  Weight: 63.5 kg

DRUGS (1)
  1. LATANOPROST. [Suspect]
     Active Substance: LATANOPROST
     Indication: GLAUCOMA
     Dosage: 1 GTT IN EACH EYE, UNK
     Route: 047
     Dates: end: 2013

REACTIONS (3)
  - Product quality issue [Unknown]
  - Nerve injury [Unknown]
  - Incorrect dose administered [Unknown]

NARRATIVE: CASE EVENT DATE: 20141202
